FAERS Safety Report 9292552 (Version 1)
Quarter: 2013Q1

REPORT INFORMATION
  Report Type: Spontaneous
  Country: US (occurrence: None)
  Receive Date: 20121214
  Receipt Date: 20121214
  Transmission Date: 20140127
  Serious: Yes (Other)
  Sender: FDA-Public Use
  Company Number: US-JNJFOC-2007320676

PATIENT
  Sex: Female

DRUGS (4)
  1. SUDAFED 24 HOUR TABLETS (PSEUDOPHEDRINE HYDROCHLORIDE) TABLET [Suspect]
     Indication: HYPERSENSITIVITY
     Route: 048
     Dates: start: 2002
  2. DILANTIN (PHENYTOIN)UNKNOWN [Concomitant]
  3. BC (VINCENTS / 00110301/)UNKNOWN [Concomitant]
  4. ADVIL (IBUPROFEN) [Concomitant]

REACTIONS (3)
  - Overdose [None]
  - Drug ineffective [None]
  - No adverse event [None]
